FAERS Safety Report 14852595 (Version 1)
Quarter: 2018Q2

REPORT INFORMATION
  Report Type: Spontaneous
  Country: US (occurrence: US)
  Receive Date: 20180419
  Receipt Date: 20180419
  Transmission Date: 20180711
  Serious: Yes (Other)
  Sender: FDA-Public Use
  Company Number: None

PATIENT
  Age: 36 Year
  Sex: Female

DRUGS (4)
  1. PROGESTERONE 50MG/ML [Suspect]
     Active Substance: PROGESTERONE
     Indication: PREGNANCY
     Route: 030
     Dates: start: 20170626
  2. ENBREL [Suspect]
     Active Substance: ETANERCEPT
     Indication: RHEUMATOID ARTHRITIS
     Route: 058
     Dates: start: 20150425
  3. CRINONE [Concomitant]
     Active Substance: PROGESTERONE
  4. ESTRADIOL. [Concomitant]
     Active Substance: ESTRADIOL

REACTIONS (1)
  - Hypersensitivity [None]

NARRATIVE: CASE EVENT DATE: 201706
